FAERS Safety Report 10045640 (Version 1)
Quarter: 2014Q1

REPORT INFORMATION
  Report Type: Spontaneous
  Country: US (occurrence: None)
  Receive Date: 20140306
  Receipt Date: 20140306
  Transmission Date: 20141002
  Serious: Yes (Other)
  Sender: FDA-Public Use
  Company Number: 163-21880-13060296

PATIENT
  Age: 60 Year
  Sex: Male
  Weight: 120.2 kg

DRUGS (5)
  1. REVLIMID (LENALIDOMIDE) (10 MILLIGRAM, CAPSULES) [Suspect]
     Indication: PLASMA CELL MYELOMA
     Dosage: 10MG, 1 IN 1D, PO
     Route: 048
     Dates: start: 20071005
  2. LISINOPRIL (LISINOPRIL) (TABLETS) [Concomitant]
  3. VITAMIN D (ERGOCALCIFEROL) [Concomitant]
  4. MULTIVITAMINS (MULTIVITAMINS) (CAPSULES) [Concomitant]
  5. CALCIUM WITH VITAMIN D (CALCIUM WITH VITAMIN D) [Concomitant]

REACTIONS (1)
  - Thrombosis [None]
